FAERS Safety Report 17072137 (Version 2)
Quarter: 2020Q1

REPORT INFORMATION
  Report Type: Report from Study
  Country: GB (occurrence: GB)
  Receive Date: 20191125
  Receipt Date: 20200110
  Transmission Date: 20200409
  Serious: Yes (Other)
  Sender: FDA-Public Use
  Company Number: NVSC2019GB026183

PATIENT
  Sex: Female

DRUGS (1)
  1. HYRIMOZ [Suspect]
     Active Substance: ADALIMUMAB-ADAZ
     Indication: RHEUMATOID ARTHRITIS
     Dosage: 1 DF (40 MG/0.8 ML), FORTNIGHTLY
     Route: 058
     Dates: start: 20190719

REACTIONS (5)
  - Lower respiratory tract infection [Unknown]
  - Rheumatoid arthritis [Unknown]
  - Nausea [Unknown]
  - Drug ineffective [Unknown]
  - Injection site pain [Unknown]
